FAERS Safety Report 8966667 (Version 1)
Quarter: 2012Q4

REPORT INFORMATION
  Report Type: 
  Country: CN (occurrence: CN)
  Receive Date: 20121214
  Receipt Date: 20121214
  Transmission Date: 20130627
  Serious: Yes (Other)
  Sender: FDA-Public Use
  Company Number: PHHY2012CN110166

PATIENT
  Age: 22 Year
  Sex: Male
  Weight: 60 kg

DRUGS (1)
  1. SEBIVO [Suspect]
     Indication: HEPATITIS B
     Dosage: 0.6 g, QD
     Route: 048
     Dates: start: 20090710, end: 20100728

REACTIONS (9)
  - Palpitations [Recovering/Resolving]
  - Nerve injury [Recovering/Resolving]
  - Chest discomfort [Recovering/Resolving]
  - Hepatitis B [Recovering/Resolving]
  - Blood creatine phosphokinase increased [Recovered/Resolved]
  - Myalgia [Recovering/Resolving]
  - Fatigue [Recovering/Resolving]
  - Nausea [Recovering/Resolving]
  - Lactic acidosis [Recovering/Resolving]
